FAERS Safety Report 8109654 (Version 5)
Quarter: 2012Q4

REPORT INFORMATION
  Report Type: Report from Study
  Country: US (occurrence: US)
  Receive Date: 20110826
  Receipt Date: 20121003
  Transmission Date: 20130627
  Serious: Yes (Other)
  Sender: FDA-Public Use
  Company Number: US-ABBOTT-11P-163-0848553-00

PATIENT
  Age: 60 None
  Sex: Male
  Weight: 40.86 kg

DRUGS (9)
  1. HUMIRA [Suspect]
     Indication: CROHN^S DISEASE
     Route: 058
     Dates: start: 2005, end: 201204
  2. HUMIRA [Interacting]
     Route: 058
     Dates: start: 201102
  3. HUMIRA [Interacting]
     Route: 058
  4. PREVACID [Interacting]
     Indication: GASTROOESOPHAGEAL REFLUX DISEASE
     Dates: end: 20110801
  5. KEPPRA [Concomitant]
     Indication: CONVULSION
  6. OXYCONTIN [Concomitant]
     Indication: PAIN
  7. OXYCONTIN [Concomitant]
     Indication: ANTIDIARRHOEAL SUPPORTIVE CARE
  8. FIORICET [Concomitant]
     Indication: HEADACHE
  9. FLAGYL [Concomitant]
     Indication: BACTERIAL INFECTION

REACTIONS (13)
  - Blood magnesium decreased [Not Recovered/Not Resolved]
  - Asthenia [Not Recovered/Not Resolved]
  - Decreased appetite [Not Recovered/Not Resolved]
  - Hypersomnia [Not Recovered/Not Resolved]
  - Depression [Not Recovered/Not Resolved]
  - Feeling abnormal [Unknown]
  - Drug interaction [Unknown]
  - Fatigue [Unknown]
  - Quality of life decreased [Unknown]
  - Frustration [Unknown]
  - Abdominal discomfort [Not Recovered/Not Resolved]
  - Gastrointestinal pain [Not Recovered/Not Resolved]
  - Fatigue [Not Recovered/Not Resolved]
